FAERS Safety Report 18031741 (Version 1)
Quarter: 2020Q3

REPORT INFORMATION
  Report Type: Spontaneous
  Country: US (occurrence: US)
  Receive Date: 20200716
  Receipt Date: 20200716
  Transmission Date: 20201103
  Serious: Yes (Hospitalization)
  Sender: FDA-Public Use
  Company Number: US-ROCHE-2641944

PATIENT
  Sex: Female
  Weight: 88.98 kg

DRUGS (5)
  1. ACTEMRA [Suspect]
     Active Substance: TOCILIZUMAB
     Indication: VASCULITIS NECROTISING
     Route: 058
     Dates: start: 20191206
  2. HUMALOG [Concomitant]
     Active Substance: INSULIN LISPRO
     Route: 058
     Dates: start: 20191127
  3. VANTIN (UNITED STATES) [Concomitant]
     Route: 048
     Dates: start: 20191105
  4. LISINOPRIL. [Concomitant]
     Active Substance: LISINOPRIL
     Route: 048
     Dates: start: 20191127
  5. METFORMIN HCL [Concomitant]
     Active Substance: METFORMIN HYDROCHLORIDE
     Route: 048
     Dates: start: 20191127

REACTIONS (4)
  - Weight decreased [Unknown]
  - Chest pain [Unknown]
  - Unintentional use for unapproved indication [Unknown]
  - Off label use [Unknown]
